FAERS Safety Report 5932393-8 (Version None)
Quarter: 2008Q4

REPORT INFORMATION
  Report Type: 
  Country: None (occurrence: None)
  Receive Date: 20081028
  Receipt Date: 20080704
  Transmission Date: 20090506
  Serious: Yes (Hospitalization)
  Sender: FDA-Public Use
  Company Number: FR-NOVOPROD-268779

PATIENT
  Age: 13 Year
  Sex: Male
  Weight: 50 kg

DRUGS (3)
  1. NORDITROPIN [Suspect]
     Indication: GROWTH HORMONE DEFICIENCY
     Dosage: 2 MG, QD
     Route: 058
     Dates: start: 20030220, end: 20060824
  2. NORDITROPIN [Suspect]
     Dosage: 2 MG, QD
     Dates: start: 20070827
  3. L-THYROXINE                        /00068001/ [Concomitant]
     Dosage: 50 UG, QD
     Dates: start: 19950101

REACTIONS (2)
  - ACTH-PRODUCING PITUITARY TUMOUR [None]
  - CUSHING'S SYNDROME [None]
